FAERS Safety Report 11102413 (Version 1)
Quarter: 2015Q2

REPORT INFORMATION
  Report Type: Spontaneous
  Country: TW (occurrence: TW)
  Receive Date: 20150511
  Receipt Date: 20150511
  Transmission Date: 20150821
  Serious: Yes (Hospitalization)
  Sender: FDA-Public Use
  Company Number: PHHY2015TW054384

PATIENT
  Age: 59 Year
  Sex: Female

DRUGS (2)
  1. TRAMADOL+PARACETAMOL [Suspect]
     Active Substance: ACETAMINOPHEN\TRAMADOL
     Indication: ARTHRALGIA
     Dosage: ONE TABLET THRICE A DAY
     Route: 065
  2. LITHIUM. [Interacting]
     Active Substance: LITHIUM
     Indication: PSYCHOTIC DISORDER
     Dosage: 300 MG THREE TABLETS ONCE DAILY
     Route: 065

REACTIONS (3)
  - Psychotic disorder [Recovered/Resolved]
  - Persecutory delusion [Recovered/Resolved]
  - Drug interaction [Recovered/Resolved]
